FAERS Safety Report 6538858-2 (Version None)
Quarter: 2010Q1

REPORT INFORMATION
  Report Type: 
  Country: None (occurrence: None)
  Receive Date: 20100115
  Receipt Date: 20100112
  Transmission Date: 20100710
  Serious: Yes (Hospitalization)
  Sender: FDA-Public Use
  Company Number: FR-ALLERGAN-1000363US

PATIENT
  Age: 86 Year
  Sex: Female

DRUGS (4)
  1. COMBIGAN [Suspect]
     Indication: GLAUCOMA
     Dosage: 2 GTT, QD
     Route: 047
     Dates: end: 20091125
  2. FLECAINIDE ACETATE [Concomitant]
  3. KARDEGIC [Concomitant]
  4. ATACAND [Concomitant]

REACTIONS (1)
  - BRADYCARDIA [None]
